FAERS Safety Report 7916940-2 (Version None)
Quarter: 2011Q4

REPORT INFORMATION
  Report Type: 
  Country: None (occurrence: None)
  Receive Date: 20111114
  Receipt Date: 20110825
  Transmission Date: 20120403
  Serious: Yes (Hospitalization, Other)
  Sender: FDA-Public Use
  Company Number: AUR-APL-2011-05777

PATIENT
  Age: 63 Year
  Sex: Male
  Weight: 70 kg

DRUGS (6)
  1. FLOXACILLIN SODIUM [Concomitant]
  2. ATORVASTATIN [Concomitant]
  3. RAMIPRIL [Concomitant]
  4. ALENDRONATE SODIUM [Suspect]
     Indication: OSTEOPOROSIS
     Dosage: (70 MG,1 WK),ORAL
     Route: 048
     Dates: start: 20110704, end: 20110704
  5. LANSOPRAZOLE [Concomitant]
  6. ACETAMINOPHEN [Concomitant]

REACTIONS (2)
  - HELICOBACTER TEST POSITIVE [None]
  - DUODENAL ULCER PERFORATION [None]
